FAERS Safety Report 17888331 (Version 2)
Quarter: 2020Q3

REPORT INFORMATION
  Report Type: Report from Study
  Country: None (occurrence: US)
  Receive Date: 20200612
  Receipt Date: 20200708
  Transmission Date: 20201103
  Serious: Yes (Death)
  Sender: FDA-Public Use
  Company Number: US-INSMED, INC.-US-INS-20-00359

PATIENT
  Age: 65 Year
  Sex: Male

DRUGS (2)
  1. LAMIRA NEBULIZER SYSTEM [Suspect]
     Active Substance: DEVICE
  2. ARIKAYCE [Suspect]
     Active Substance: AMIKACIN
     Indication: MYCOBACTERIAL INFECTION
     Route: 055
     Dates: start: 20190828, end: 20200520

REACTIONS (4)
  - Chronic obstructive pulmonary disease [Not Recovered/Not Resolved]
  - Device issue [Unknown]
  - Drug dose omission by device [Unknown]
  - Death [Fatal]

NARRATIVE: CASE EVENT DATE: 20200604
